FAERS Safety Report 4394372-4 (Version None)
Quarter: 2004Q3

REPORT INFORMATION
  Report Type: 
  Country: None (occurrence: None)
  Receive Date: 20040712
  Receipt Date: 20040511
  Transmission Date: 20050211
  Serious: Yes (Life-Threatening, Hospitalization, Other)
  Sender: FDA-Public Use
  Company Number: 200411070DE

PATIENT
  Age: 54 Year
  Sex: Male
  Weight: 86 kg

DRUGS (10)
  1. TAXOTERE [Suspect]
     Indication: BRONCHIAL CARCINOMA
     Dosage: DOSE: 60 OR 80
     Route: 042
     Dates: start: 20040401, end: 20040506
  2. IBUPROFEN [Concomitant]
  3. PANTOZOL [Concomitant]
     Route: 042
  4. ANALGESIC LIQ [Concomitant]
  5. MARCUMAR [Concomitant]
     Dates: start: 20040101
  6. CISPLATIN [Concomitant]
     Indication: BRONCHIAL CARCINOMA
  7. VINORELBIN [Concomitant]
     Indication: BRONCHIAL CARCINOMA
  8. OXYGESIC [Concomitant]
     Route: 048
     Dates: start: 20040509
  9. LACTULOSE [Concomitant]
     Indication: CONSTIPATION
     Route: 048
     Dates: start: 20040509
  10. DECORTIN-H [Concomitant]
     Indication: DYSPNOEA
     Route: 042
     Dates: start: 20040509

REACTIONS (6)
  - COAGULOPATHY [None]
  - DRUG TOXICITY [None]
  - HAEMORRHAGE [None]
  - MICROANGIOPATHY [None]
  - PANCYTOPENIA [None]
  - SKIN DISCOLOURATION [None]
